FAERS Safety Report 8770329 (Version 2)
Quarter: 2012Q4

REPORT INFORMATION
  Report Type: 
  Country: FR (occurrence: FR)
  Receive Date: 20120906
  Receipt Date: 20120913
  Transmission Date: 20130627
  Serious: Yes (Hospitalization)
  Sender: FDA-Public Use
  Company Number: FR-UCBSA-059991

PATIENT
  Age: 79 Year
  Sex: Female
  Weight: 39 kg

DRUGS (7)
  1. NEUPRO [Suspect]
     Indication: PARKINSON^S DISEASE
     Route: 062
     Dates: start: 20120225, end: 20120611
  2. STALEVO [Concomitant]
     Indication: PARKINSON^S DISEASE
     Dates: start: 20100517
  3. SINEMET [Concomitant]
     Indication: PARKINSON^S DISEASE
     Dates: start: 2007
  4. ATENOLOL [Concomitant]
     Indication: ARRHYTHMIA
     Dosage: 50 MG (0.5 PER DAY)
     Dates: start: 2008
  5. FLECAINE [Concomitant]
     Indication: ARRHYTHMIA
     Dates: start: 2008
  6. FLECAINE [Concomitant]
     Indication: SUPRAVENTRICULAR TACHYCARDIA
     Dates: start: 2008
  7. KARDEGIC [Concomitant]
     Dates: start: 2008

REACTIONS (3)
  - Rash vesicular [Recovered/Resolved]
  - Infected skin ulcer [Unknown]
  - Pruritus [Unknown]
